FAERS Safety Report 13311908 (Version 1)
Quarter: 2017Q1

REPORT INFORMATION
  Report Type: Spontaneous
  Country: JP (occurrence: JP)
  Receive Date: 20170309
  Receipt Date: 20170309
  Transmission Date: 20170428
  Serious: Yes (Disabling)
  Sender: FDA-Public Use
  Company Number: JP-009507513-1701JPN001673J

PATIENT
  Age: 70 Year
  Sex: Male

DRUGS (2)
  1. MARIZEV TABLETS 25MG [Suspect]
     Active Substance: OMARIGLIPTIN
     Indication: DIABETES MELLITUS
     Dosage: 25 MG, QW
     Route: 048
     Dates: start: 20161207, end: 20170110
  2. PREMINENT TABLETS LD [Suspect]
     Active Substance: HYDROCHLOROTHIAZIDE\LOSARTAN POTASSIUM
     Indication: HYPERTENSION
     Dosage: 1 DF, QD
     Route: 048
     Dates: start: 20110111, end: 20170303

REACTIONS (4)
  - Dehydration [Unknown]
  - Blood creatinine increased [None]
  - Renal disorder [Recovered/Resolved]
  - Blood urea increased [None]

NARRATIVE: CASE EVENT DATE: 201701
